FAERS Safety Report 23779027 (Version 1)
Quarter: 2024Q2

REPORT INFORMATION
  Report Type: Spontaneous
  Country: FR (occurrence: FR)
  Receive Date: 20240424
  Receipt Date: 20240424
  Transmission Date: 20240717
  Serious: Yes (Other)
  Sender: FDA-Public Use
  Company Number: None

PATIENT
  Age: 77 Year
  Sex: Male

DRUGS (1)
  1. VORICONAZOLE [Suspect]
     Active Substance: VORICONAZOLE
     Indication: Bronchopulmonary aspergillosis
     Dosage: 2 DOSAGE FORM, BID (2 TABS MORNING AND EVENING INSTEAD OF 1 TAB MORNING AND EVENING)
     Route: 048
     Dates: start: 20240219, end: 20240303

REACTIONS (2)
  - Hypertransaminasaemia [Recovering/Resolving]
  - Wrong strength [Recovered/Resolved]

NARRATIVE: CASE EVENT DATE: 20240219
